FAERS Safety Report 12978184 (Version 1)
Quarter: 2016Q4

REPORT INFORMATION
  Report Type: Report from Study
  Country: FR (occurrence: FR)
  Receive Date: 20161128
  Receipt Date: 20161128
  Transmission Date: 20170207
  Serious: Yes (Other)
  Sender: FDA-Public Use
  Company Number: FR-AMGEN-FRASL2016167287

PATIENT
  Age: 57 Year
  Sex: Female

DRUGS (2)
  1. NEULASTA [Suspect]
     Active Substance: PEGFILGRASTIM
     Dosage: 6 MG, AFTER CHEMO
     Route: 058
     Dates: start: 201605
  2. NEULASTA [Suspect]
     Active Substance: PEGFILGRASTIM
     Indication: LYMPHOMA
     Dosage: 6 MG, AFTER CHEMO
     Route: 058
     Dates: start: 201602, end: 2016

REACTIONS (7)
  - Ankle fracture [Not Recovered/Not Resolved]
  - Sleep disorder [Not Recovered/Not Resolved]
  - Thyroid disorder [Not Recovered/Not Resolved]
  - Constipation [Not Recovered/Not Resolved]
  - Night sweats [Not Recovered/Not Resolved]
  - Migraine [Not Recovered/Not Resolved]
  - Urinary bladder polyp [Recovered/Resolved]

NARRATIVE: CASE EVENT DATE: 201609
